FAERS Safety Report 21620687 (Version 2)
Quarter: 2022Q4

REPORT INFORMATION
  Report Type: Other
  Country: US (occurrence: None)
  Receive Date: 20221121
  Receipt Date: 20221212
  Transmission Date: 20230113
  Serious: Yes (Hospitalization)
  Sender: FDA-Public Use
  Company Number: US-ROCHE-3211980

PATIENT
  Age: 43 Year
  Sex: Male

DRUGS (17)
  1. OCRELIZUMAB [Suspect]
     Active Substance: OCRELIZUMAB
     Indication: Multiple sclerosis
     Dosage: FIRST DOSE SEPARATED INTO TWO 300 MG ADMINISTRATIONS TWO WEEKS APART, SUBSEQUENT DOSING EVERY 6 MONT
     Route: 065
     Dates: start: 20200505
  2. OCRELIZUMAB [Suspect]
     Active Substance: OCRELIZUMAB
     Dosage: FIRST DOSE SEPARATED INTO TWO 300 MG ADMINISTRATIONS TWO WEEKS APART, SUBSEQUENT DOSING EVERY 6 MONT
     Route: 065
     Dates: start: 20200518
  3. OCRELIZUMAB [Suspect]
     Active Substance: OCRELIZUMAB
     Route: 065
     Dates: start: 20201113
  4. OCRELIZUMAB [Suspect]
     Active Substance: OCRELIZUMAB
     Route: 065
     Dates: start: 20210521
  5. OCRELIZUMAB [Suspect]
     Active Substance: OCRELIZUMAB
     Route: 065
     Dates: start: 20211118
  6. OCRELIZUMAB [Suspect]
     Active Substance: OCRELIZUMAB
     Route: 065
     Dates: start: 20220517
  7. DALFAMPRIDINE [Concomitant]
     Active Substance: DALFAMPRIDINE
  8. TIZANIDINE [Concomitant]
     Active Substance: TIZANIDINE
  9. BACLOFEN [Concomitant]
     Active Substance: BACLOFEN
  10. BUPROPION [Concomitant]
     Active Substance: BUPROPION
  11. CLONAZEPAM [Concomitant]
     Active Substance: CLONAZEPAM
  12. IBUPROFEN [Concomitant]
     Active Substance: IBUPROFEN
  13. LOPERAMIDE HYDROCHLORIDE [Concomitant]
     Active Substance: LOPERAMIDE HYDROCHLORIDE
  14. CARBAMAZEPINE [Concomitant]
     Active Substance: CARBAMAZEPINE
  15. DULOXETINE [Concomitant]
     Active Substance: DULOXETINE
  16. ELIQUIS [Concomitant]
     Active Substance: APIXABAN
     Indication: Oedema
  17. LASIX [Concomitant]
     Active Substance: FUROSEMIDE
     Indication: Oedema

REACTIONS (1)
  - Deep vein thrombosis [Recovering/Resolving]

NARRATIVE: CASE EVENT DATE: 20220810
